FAERS Safety Report 7276612-7 (Version None)
Quarter: 2011Q1

REPORT INFORMATION
  Report Type: 
  Country: None (occurrence: None)
  Receive Date: 20110204
  Receipt Date: 20101216
  Transmission Date: 20110831
  Serious: Yes (Hospitalization, Other)
  Sender: FDA-Public Use
  Company Number: US-BAYER-201020669NA

PATIENT
  Sex: Female

DRUGS (3)
  1. YAZ [Suspect]
     Indication: PRODUCT USED FOR UNKNOWN INDICATION
     Route: 048
     Dates: start: 20080301, end: 20080414
  2. UNCODEABLE ^UNCLASSIFIABLE^ [Concomitant]
  3. ROCEPHIN [Concomitant]

REACTIONS (10)
  - PAIN IN EXTREMITY [None]
  - ERYTHEMA [None]
  - ARTHRALGIA [None]
  - PEAU D'ORANGE [None]
  - COAGULOPATHY [None]
  - HYPOAESTHESIA [None]
  - DEEP VEIN THROMBOSIS [None]
  - THROMBOSIS [None]
  - PHLEBITIS [None]
  - PARAESTHESIA [None]
